FAERS Safety Report 20122476 (Version 1)
Quarter: 2021Q4

REPORT INFORMATION
  Report Type: Spontaneous
  Country: US (occurrence: US)
  Receive Date: 20211128
  Receipt Date: 20211128
  Transmission Date: 20220303
  Serious: No
  Sender: FDA-Public Use
  Company Number: US-Orient Pharma-000056

PATIENT
  Sex: Male

DRUGS (1)
  1. CARISOPRODOL [Suspect]
     Active Substance: CARISOPRODOL
     Indication: Pain

REACTIONS (5)
  - Drug ineffective [Unknown]
  - Somnolence [Unknown]
  - Irritability [Unknown]
  - Gait inability [Unknown]
  - Product substitution issue [Unknown]
